FAERS Safety Report 18687188 (Version 1)
Quarter: 2020Q4

REPORT INFORMATION
  Report Type: Report from Study
  Country: JP (occurrence: JP)
  Receive Date: 20201231
  Receipt Date: 20201231
  Transmission Date: 20210114
  Serious: Yes (Other)
  Sender: FDA-Public Use
  Company Number: JP-JNJFOC-20201250338

PATIENT

DRUGS (1)
  1. ERLEADA [Suspect]
     Active Substance: APALUTAMIDE
     Indication: HORMONE-REFRACTORY PROSTATE CANCER
     Dosage: DOSE UNKNOWN
     Route: 048

REACTIONS (13)
  - Decreased appetite [Unknown]
  - Taste disorder [Unknown]
  - Nausea [Unknown]
  - Dizziness [Unknown]
  - Neuropathy peripheral [Unknown]
  - Liver disorder [Unknown]
  - Musculoskeletal stiffness [Unknown]
  - Rash [Unknown]
  - Pruritus [Unknown]
  - Cardiac failure [Unknown]
  - Insomnia [Unknown]
  - Malaise [Unknown]
  - Hot flush [Unknown]
